FAERS Safety Report 10240073 (Version 1)
Quarter: 2014Q2

REPORT INFORMATION
  Report Type: Spontaneous
  Country: GB (occurrence: GB)
  Receive Date: 20140617
  Receipt Date: 20140617
  Transmission Date: 20141212
  Serious: Yes (Disabling)
  Sender: FDA-Public Use
  Company Number: GB-UCBSA-2014001403

PATIENT
  Age: 39 Year
  Sex: Female
  Weight: 80 kg

DRUGS (3)
  1. CIMZIA [Suspect]
     Indication: RHEUMATOID ARTHRITIS
     Dosage: 200 MG, EV 2 WEEKS(QOW)
     Route: 058
     Dates: start: 20140324, end: 20140424
  2. METHOTREXATE [Concomitant]
     Dosage: UNKNOWN
  3. PREDNISOLONE [Concomitant]
     Dosage: UNKNOWN

REACTIONS (2)
  - Paraesthesia [Recovering/Resolving]
  - Peroneal nerve palsy [Recovering/Resolving]
